FAERS Safety Report 20415910 (Version 1)
Quarter: 2022Q1

REPORT INFORMATION
  Report Type: Spontaneous
  Country: US (occurrence: None)
  Receive Date: 20220201
  Receipt Date: 20220201
  Transmission Date: 20220423
  Serious: Yes (Disabling, Other)
  Sender: FDA-Public Use
  Company Number: None

PATIENT
  Age: 50 Year
  Sex: Female
  Weight: 99 kg

DRUGS (1)
  1. BUPIVACAINE [Suspect]
     Active Substance: BUPIVACAINE
     Indication: Drug therapy
     Dates: start: 20220103, end: 20220103

REACTIONS (19)
  - Ageusia [None]
  - Decreased appetite [None]
  - Nausea [None]
  - Weight increased [None]
  - Diarrhoea [None]
  - Insomnia [None]
  - Anxiety [None]
  - Paraesthesia [None]
  - Vision blurred [None]
  - Chills [None]
  - Dizziness [None]
  - Dizziness [None]
  - Balance disorder [None]
  - Abdominal distension [None]
  - Thirst [None]
  - Mood altered [None]
  - Nervousness [None]
  - Vomiting [None]
  - Injection related reaction [None]

NARRATIVE: CASE EVENT DATE: 20220103
